FAERS Safety Report 6601887-4 (Version None)
Quarter: 2010Q1

REPORT INFORMATION
  Report Type: 
  Country: None (occurrence: None)
  Receive Date: 20100218
  Receipt Date: 20100210
  Transmission Date: 20100710
  Serious: Yes (Hospitalization)
  Sender: FDA-Public Use
  Company Number: ALL1-2010-00643

PATIENT
  Age: 66 Year
  Sex: Male

DRUGS (1)
  1. FOSRENOL [Suspect]
     Indication: HYPERPHOSPHATAEMIA
     Dosage: 500 MG, WITH MEALS, ORAL
     Route: 048
     Dates: start: 20100205, end: 20100208

REACTIONS (4)
  - BLOOD COUNT ABNORMAL [None]
  - HYPOTENSION [None]
  - NAUSEA [None]
  - VOMITING [None]
